FAERS Safety Report 8974979 (Version 1)
Quarter: 2012Q4

REPORT INFORMATION
  Report Type: 
  Country: US (occurrence: US)
  Receive Date: 20121219
  Receipt Date: 20121219
  Transmission Date: 20130627
  Serious: Yes (Hospitalization)
  Sender: FDA-Public Use
  Company Number: US-ELI_LILLY_AND_COMPANY-US201212003574

PATIENT
  Sex: Male

DRUGS (3)
  1. CYMBALTA [Suspect]
     Indication: PAIN
     Dosage: 30 mg, bid
     Dates: start: 2005
  2. CYMBALTA [Suspect]
     Dosage: 90 mg, qd 30 mg morning and 60 mg evening
     Dates: start: 2010
  3. ALTACE [Concomitant]
     Dosage: 5 mg, qd

REACTIONS (5)
  - Panic attack [Unknown]
  - Staphylococcal infection [Unknown]
  - Pain [Unknown]
  - Drug effect incomplete [Unknown]
  - Back disorder [Not Recovered/Not Resolved]
